FAERS Safety Report 24009685 (Version 1)
Quarter: 2024Q2

REPORT INFORMATION
  Report Type: Spontaneous
  Country: IL (occurrence: IL)
  Receive Date: 20240625
  Receipt Date: 20240625
  Transmission Date: 20240716
  Serious: Yes (Hospitalization)
  Sender: FDA-Public Use
  Company Number: IL-Accord-431133

PATIENT
  Age: 39 Year
  Sex: Female

DRUGS (1)
  1. CARBOPLATIN [Suspect]
     Active Substance: CARBOPLATIN
     Indication: Squamous cell carcinoma

REACTIONS (2)
  - Escherichia urinary tract infection [Recovered/Resolved]
  - Klebsiella infection [Recovered/Resolved]
